FAERS Safety Report 4710562-2 (Version None)
Quarter: 2005Q3

REPORT INFORMATION
  Report Type: 
  Country: None (occurrence: None)
  Receive Date: 20050706
  Receipt Date: 20050706
  Transmission Date: 20060218
  Serious: Yes (Other)
  Sender: FDA-Public Use
  Company Number: None

PATIENT
  Sex: Male

DRUGS (2)
  1. DOXAZOCIN 8MG [Suspect]
     Indication: URINARY TRACT DISORDER
     Dosage: 8 MG PO
     Route: 048
     Dates: start: 20050601, end: 20050628
  2. AVODART [Concomitant]

REACTIONS (3)
  - DRUG INEFFECTIVE [None]
  - DYSURIA [None]
  - THERAPEUTIC RESPONSE UNEXPECTED WITH DRUG SUBSTITUTION [None]
